FAERS Safety Report 4890028-X (Version None)
Quarter: 2006Q1

REPORT INFORMATION
  Report Type: 
  Country: None (occurrence: None)
  Receive Date: 20060123
  Receipt Date: 20060109
  Transmission Date: 20060701
  Serious: Yes (Other)
  Sender: FDA-Public Use
  Company Number: 2006004694

PATIENT
  Age: 34 Year
  Sex: Male
  Weight: 83.9154 kg

DRUGS (3)
  1. BENADRYL [Suspect]
     Indication: RASH
     Dosage: 2 KAPSEALS EVERY 4 TO 6 HOURS, ORAL
     Route: 048
     Dates: start: 20060108, end: 20060108
  2. BENADRYL [Suspect]
     Indication: RASH
     Dosage: TOPICAL
     Route: 061
  3. BENADRYL [Suspect]
     Indication: RASH
     Dosage: ONCE, INTRAVENOUS
     Route: 042
     Dates: start: 20060109, end: 20060109

REACTIONS (3)
  - CONDITION AGGRAVATED [None]
  - RASH ERYTHEMATOUS [None]
  - THERAPY NON-RESPONDER [None]
